FAERS Safety Report 11919506 (Version 1)
Quarter: 2016Q1

REPORT INFORMATION
  Report Type: Spontaneous
  Country: US (occurrence: None)
  Receive Date: 20160114
  Receipt Date: 20160114
  Transmission Date: 20160526
  Serious: Yes (Life-Threatening)
  Sender: FDA-Public Use
  Company Number: None

PATIENT
  Age: 67 Year
  Sex: Male
  Weight: 81.8 kg

DRUGS (2)
  1. ADENOSINE. [Suspect]
     Active Substance: ADENOSINE
     Indication: SURGERY
     Route: 042
     Dates: start: 20151031, end: 20151031
  2. ASPIRIN. [Suspect]
     Active Substance: ASPIRIN
     Indication: SURGERY
     Route: 048
     Dates: start: 20151031, end: 20151031

REACTIONS (3)
  - Bronchospasm [None]
  - Dry mouth [None]
  - Flushing [None]

NARRATIVE: CASE EVENT DATE: 20151030
